FAERS Safety Report 12201432 (Version 1)
Quarter: 2016Q1

REPORT INFORMATION
  Report Type: Spontaneous
  Country: US (occurrence: US)
  Receive Date: 20160322
  Receipt Date: 20160322
  Transmission Date: 20160526
  Serious: No
  Sender: FDA-Public Use
  Company Number: US-SA-2015SA033778

PATIENT
  Age: 79 Year
  Sex: Male

DRUGS (2)
  1. AFRIN [Concomitant]
     Active Substance: OXYMETAZOLINE
     Indication: NASAL DISCOMFORT
  2. NASACORT ALLERGY 24HR [Suspect]
     Active Substance: TRIAMCINOLONE ACETONIDE
     Indication: MULTIPLE ALLERGIES
     Dosage: DOSE:2 SPRAYS EACH NOSTRILS
     Dates: start: 20150316

REACTIONS (2)
  - Drug ineffective [Unknown]
  - Hypoacusis [Unknown]
